FAERS Safety Report 13180623 (Version 1)
Quarter: 2017Q1

REPORT INFORMATION
  Report Type: Spontaneous
  Country: DE (occurrence: DE)
  Receive Date: 20170202
  Receipt Date: 20170202
  Transmission Date: 20170428
  Serious: Yes (Hospitalization, Other)
  Sender: FDA-Public Use
  Company Number: DE-PFIZER INC-2017037412

PATIENT
  Sex: Male
  Weight: 3.1 kg

DRUGS (10)
  1. ATOSIL DROPS [Concomitant]
     Indication: SLEEP DISORDER
     Dosage: UNK, 1 TRIMESTER, 6.2. - 6.2. GESTATIONAL WEEK
     Route: 064
     Dates: start: 20160111, end: 20160111
  2. RIOPAN [Concomitant]
     Active Substance: MAGALDRATE
     Indication: DYSPEPSIA
     Dosage: UNK, 4 OR 5 TIMES ONLY
     Route: 064
  3. SERTRALINE HCL [Suspect]
     Active Substance: SERTRALINE HYDROCHLORIDE
     Indication: DEPRESSION
     Dosage: 100 MG, 1X/DAY, 1 TRIMESTER 0. - 37.2. GESTATIONAL WEEK
     Route: 064
     Dates: start: 20151128, end: 20160815
  4. RENNIE [Concomitant]
     Active Substance: MAGNESIUM CARBONATE
     Indication: DYSPEPSIA
     Dosage: UNK, 2 TRIMESTER, 19.6. - 28.4. GESTATIONAL WEEK
     Route: 064
  5. AGYRAX [Concomitant]
     Active Substance: MECLIZINE HYDROCHLORIDE
     Indication: NAUSEA
     Dosage: 25 MG, 1X/DAY, FIRST TRIMESTER 6.6. - 15.3. GESTATIONAL WEEK
     Route: 064
  6. LEVODOPA [Concomitant]
     Active Substance: LEVODOPA
     Indication: RESTLESS LEGS SYNDROME
     Dosage: 25 MG, 1X/DAY, 1 TRIMESTER 0. - 12.5. GESTATIONAL WEEK
     Route: 064
  7. FOLIO [Concomitant]
     Active Substance: FOLIC ACID
     Indication: PROPHYLAXIS OF NEURAL TUBE DEFECT
     Dosage: 0.4 MG, 1X/DAY, 1 TRIMESTER, 4. - 37.2. GESTATIONAL WEEK
     Route: 064
  8. OMEPRAZOL [Concomitant]
     Active Substance: OMEPRAZOLE
     Indication: DYSPEPSIA
     Dosage: UNK, ONLY ONCE DURING THAT TIME, THIRD TRIMESTER, 28. - 32. GESTATIONAL WEEK
     Route: 064
  9. NAUSEMA [Concomitant]
     Indication: NAUSEA
     Dosage: UNK, 1 TRIMESTER; 6.6. - 8.2. GESTATIONAL WEEK
     Route: 064
  10. FERRLECIT [Concomitant]
     Active Substance: SODIUM FERRIC GLUCONATE COMPLEX
     Indication: IRON DEFICIENCY
     Dosage: 62.5 MG, 18 INJECTIONS IN TOTAL
     Route: 064

REACTIONS (7)
  - Maternal exposure during pregnancy [Unknown]
  - Haemolysis [Unknown]
  - Respiratory disorder neonatal [Recovered/Resolved]
  - Hyperbilirubinaemia neonatal [Recovered/Resolved]
  - Anaemia [Recovering/Resolving]
  - Atrial septal defect [Unknown]
  - Dehydration [Unknown]

NARRATIVE: CASE EVENT DATE: 20160815
